FAERS Safety Report 5072819-8 (Version None)
Quarter: 2006Q3

REPORT INFORMATION
  Report Type: 
  Country: None (occurrence: None)
  Receive Date: 20060802
  Receipt Date: 20060718
  Transmission Date: 20061208
  Serious: Yes (Hospitalization, Other)
  Sender: FDA-Public Use
  Company Number: 220623

PATIENT
  Age: 52 Year
  Sex: Male

DRUGS (2)
  1. EFALIZUMAB(EFALIZUMAB) PWDR + SOLVENT, INJECTION SOLN, 125MG [Suspect]
     Indication: PSORIASIS
     Dosage: 0.142 MG/KG, SUBCUTANEOUS
     Route: 058
     Dates: start: 20051115, end: 20051206
  2. CYCLOSPORINE [Concomitant]

REACTIONS (5)
  - DERMATITIS EXFOLIATIVE [None]
  - DRUG ERUPTION [None]
  - GAIT DISTURBANCE [None]
  - IMPETIGO [None]
  - PEMPHIGOID [None]
